FAERS Safety Report 12715068 (Version 1)
Quarter: 2016Q3

REPORT INFORMATION
  Report Type: Report from Study
  Country: PE (occurrence: PE)
  Receive Date: 20160905
  Receipt Date: 20160905
  Transmission Date: 20161109
  Serious: Yes (Hospitalization)
  Sender: FDA-Public Use
  Company Number: PE-TEVA-689842ISR

PATIENT
  Age: 61 Year
  Sex: Female

DRUGS (1)
  1. FILARTROS 20 MG TAB [Suspect]
     Active Substance: LEFLUNOMIDE
     Route: 048
     Dates: start: 201307

REACTIONS (1)
  - Renal disorder [Recovering/Resolving]

NARRATIVE: CASE EVENT DATE: 20160623
